FAERS Safety Report 5587840-0 (Version None)
Quarter: 2008Q1

REPORT INFORMATION
  Report Type: 
  Country: None (occurrence: None)
  Receive Date: 20080111
  Receipt Date: 20080107
  Transmission Date: 20080703
  Serious: Yes (Hospitalization)
  Sender: FDA-Public Use
  Company Number: JP-SP-2008-00047

PATIENT
  Age: 65 Year
  Sex: Male

DRUGS (2)
  1. IMMUCYST [Suspect]
     Indication: BLADDER CANCER
     Route: 043
     Dates: start: 20071221, end: 20071221
  2. IMMUCYST [Suspect]
     Route: 043
     Dates: start: 20071221, end: 20071221

REACTIONS (3)
  - BOVINE TUBERCULOSIS [None]
  - CONTRACTED BLADDER [None]
  - CYSTITIS [None]
